FAERS Safety Report 13262777 (Version 1)
Quarter: 2017Q1

REPORT INFORMATION
  Report Type: Spontaneous
  Country: DE (occurrence: DE)
  Receive Date: 20170223
  Receipt Date: 20170223
  Transmission Date: 20170428
  Serious: Yes (Hospitalization, Other)
  Sender: FDA-Public Use
  Company Number: DE-ASTRAZENECA-2017SE17912

PATIENT
  Sex: Female

DRUGS (1)
  1. OLAPARIB [Suspect]
     Active Substance: OLAPARIB
     Route: 048
     Dates: start: 2014

REACTIONS (2)
  - Metastases to liver [Unknown]
  - Metastases to bone [Unknown]

NARRATIVE: CASE EVENT DATE: 20170214
